FAERS Safety Report 12373553 (Version 2)
Quarter: 2016Q2

REPORT INFORMATION
  Report Type: Spontaneous
  Country: CH (occurrence: CH)
  Receive Date: 20160516
  Receipt Date: 20160523
  Transmission Date: 20160815
  Serious: Yes (Other)
  Sender: FDA-Public Use
  Company Number: PHHY2016CH057787

PATIENT
  Sex: Female

DRUGS (2)
  1. RELPAX [Concomitant]
     Active Substance: ELETRIPTAN HYDROBROMIDE
     Indication: PRODUCT USED FOR UNKNOWN INDICATION
     Dosage: 40 MG, UNK
     Route: 065
  2. GILENYA [Suspect]
     Active Substance: FINGOLIMOD HYDROCHLORIDE
     Indication: MULTIPLE SCLEROSIS
     Dosage: 0.5 MG, QD
     Route: 048
     Dates: start: 20160404

REACTIONS (12)
  - Pallor [Unknown]
  - Cardiac disorder [Unknown]
  - Condition aggravated [Unknown]
  - Erythema [Unknown]
  - Peripheral coldness [Unknown]
  - Peripheral swelling [Unknown]
  - Hyperhidrosis [Unknown]
  - Fatigue [Unknown]
  - Feeling hot [Unknown]
  - Palpitations [Unknown]
  - Angina pectoris [Unknown]
  - Dizziness [Unknown]

NARRATIVE: CASE EVENT DATE: 20160404
